FAERS Safety Report 21065572 (Version 3)
Quarter: 2023Q2

REPORT INFORMATION
  Report Type: Report from Study
  Country: US (occurrence: US)
  Receive Date: 20220711
  Receipt Date: 20230410
  Transmission Date: 20230721
  Serious: Yes (Other)
  Sender: FDA-Public Use
  Company Number: US-MYLANLABS-2022M1051680

PATIENT
  Sex: Female

DRUGS (3)
  1. AMNESTEEM [Suspect]
     Active Substance: ISOTRETINOIN
     Indication: Product used for unknown indication
     Dosage: 40 MILLIGRAM
     Route: 065
     Dates: start: 20210916, end: 20220531
  2. AMNESTEEM [Suspect]
     Active Substance: ISOTRETINOIN
     Dosage: 40 MILLIGRAM
     Route: 065
     Dates: start: 20210917, end: 20220705
  3. CLARAVIS [Suspect]
     Active Substance: ISOTRETINOIN
     Indication: Product used for unknown indication
     Dosage: 30 MILLIGRAM
     Route: 065
     Dates: start: 20220104, end: 20220203

REACTIONS (2)
  - Maternal exposure during pregnancy [Recovered/Resolved]
  - Vaginal haemorrhage [Unknown]
